FAERS Safety Report 9141006 (Version 2)
Quarter: 2013Q1

REPORT INFORMATION
  Report Type: Spontaneous
  Country: US (occurrence: US)
  Receive Date: 20130305
  Receipt Date: 20130322
  Transmission Date: 20140127
  Serious: Yes (Hospitalization, Other)
  Sender: FDA-Public Use
  Company Number: US-BAXTER-2013BAX007694

PATIENT
  Age: 70 Year
  Sex: Male

DRUGS (6)
  1. DIANEAL LOW CALCIUM [Suspect]
     Indication: PERITONEAL DIALYSIS
     Route: 033
     Dates: start: 20111201
  2. DIANEAL LOW CALCIUM [Suspect]
     Indication: PERITONEAL DIALYSIS
     Route: 033
     Dates: start: 20111201
  3. HUMALOG [Concomitant]
     Indication: DIABETES MELLITUS
     Route: 065
  4. LANTUS [Concomitant]
     Indication: DIABETES MELLITUS
     Route: 065
  5. PROCRIT [Concomitant]
     Indication: ANAEMIA
     Route: 065
  6. COREG [Concomitant]
     Indication: CARDIAC FAILURE
     Route: 065

REACTIONS (3)
  - Cardiac failure acute [Not Recovered/Not Resolved]
  - Pulmonary oedema [Unknown]
  - Peritonitis bacterial [Recovered/Resolved]
